FAERS Safety Report 5067205-0 (Version None)
Quarter: 2006Q3

REPORT INFORMATION
  Report Type: 
  Country: None (occurrence: None)
  Receive Date: 20060727
  Receipt Date: 20060710
  Transmission Date: 20061208
  Serious: Yes (Other)
  Sender: FDA-Public Use
  Company Number: 2006RR-02981

PATIENT
  Sex: Male

DRUGS (2)
  1. IBUPROFEN [Suspect]
     Dosage: ORAL
     Route: 048
     Dates: start: 20030501
  2. CODEINE PHOSPHATE TABLET 30MG BP (CODEINE PHOSPHATE) [Suspect]
     Dosage: ORAL
     Route: 048
     Dates: start: 20030501

REACTIONS (2)
  - DRUG DEPENDENCE [None]
  - PALLOR [None]
